FAERS Safety Report 23459391 (Version 2)
Quarter: 2024Q1

REPORT INFORMATION
  Report Type: Spontaneous
  Country: JP (occurrence: JP)
  Receive Date: 20240131
  Receipt Date: 20240202
  Transmission Date: 20240410
  Serious: Yes (Hospitalization)
  Sender: FDA-Public Use
  Company Number: JP-NOVOPROD-1166266

PATIENT
  Age: 58 Year
  Sex: Female

DRUGS (1)
  1. RYBELSUS [Suspect]
     Active Substance: SEMAGLUTIDE
     Indication: Type 2 diabetes mellitus
     Dosage: 14 MG, QD
     Route: 048

REACTIONS (1)
  - Hospitalisation [Unknown]
